FAERS Safety Report 13790464 (Version 1)
Quarter: 2017Q3

REPORT INFORMATION
  Report Type: Spontaneous
  Country: US (occurrence: US)
  Receive Date: 20170725
  Receipt Date: 20170725
  Transmission Date: 20171127
  Serious: No
  Sender: FDA-Public Use
  Company Number: US-GLAXOSMITHKLINE-US2017111056

PATIENT
  Age: 72 Year
  Sex: Female

DRUGS (1)
  1. VOLTAREN [Suspect]
     Active Substance: DICLOFENAC SODIUM
     Indication: MUSCULOSKELETAL PAIN
     Dosage: UNK
     Dates: start: 20170623, end: 20170626

REACTIONS (13)
  - Swelling face [Unknown]
  - Mouth swelling [Unknown]
  - Drug administered at inappropriate site [Unknown]
  - Neck pain [Unknown]
  - Musculoskeletal pain [Unknown]
  - Condition aggravated [Unknown]
  - Lip swelling [Unknown]
  - Off label use [Unknown]
  - Pain in extremity [Unknown]
  - Swelling [Unknown]
  - Emergency care examination [Unknown]
  - Back pain [Unknown]
  - Hypersensitivity [Unknown]

NARRATIVE: CASE EVENT DATE: 20170624
